FAERS Safety Report 10564289 (Version 1)
Quarter: 2014Q4

REPORT INFORMATION
  Report Type: Other
  Country: GB (occurrence: GB)
  Receive Date: 20141104
  Receipt Date: 20141104
  Transmission Date: 20150529
  Serious: Yes (Other)
  Sender: FDA-Public Use
  Company Number: GB-MYLANLABS-2014M1008580

PATIENT

DRUGS (6)
  1. FISH OIL [Concomitant]
     Active Substance: FISH OIL
  2. CETIRIZINE HYDROCHLORIDE. [Suspect]
     Active Substance: CETIRIZINE HYDROCHLORIDE
     Indication: ALLERGY TO ANIMAL
     Dosage: TAKING EVERY DAY, MAYBE MISSING 2 DAYS OUT OF 7 FOR OVER TEN YEARS
     Route: 048
  3. BEROCCA [Concomitant]
     Active Substance: VITAMINS
  4. GARLIC OIL [Concomitant]
     Active Substance: GARLIC OIL
  5. LEVOTHYROXINE [Suspect]
     Active Substance: LEVOTHYROXINE
     Indication: HYPOTHYROIDISM
     Dosage: TO BE REASSESSED BY DOCTOR
  6. EVENING PRIMROSE OIL [Concomitant]
     Active Substance: EVENING PRIMROSE OIL

REACTIONS (4)
  - Fatigue [Unknown]
  - Somnolence [Unknown]
  - Feeling abnormal [Unknown]
  - Drug interaction [Unknown]
